FAERS Safety Report 23341809 (Version 2)
Quarter: 2023Q4

REPORT INFORMATION
  Report Type: Spontaneous
  Country: FR (occurrence: FR)
  Receive Date: 20231227
  Receipt Date: 20231229
  Transmission Date: 20240110
  Serious: Yes (Life-Threatening, Other)
  Sender: FDA-Public Use
  Company Number: None

PATIENT
  Age: 51 Year
  Sex: Female
  Weight: 87 kg

DRUGS (18)
  1. CALCIUM CARBONATE [Suspect]
     Active Substance: CALCIUM CARBONATE
     Indication: Sciatica
     Dosage: 1 DF, QD; 1 SACHET A DAY
     Route: 065
  2. MYCOPHENOLATE MOFETIL [Suspect]
     Active Substance: MYCOPHENOLATE MOFETIL
     Indication: Sjogren^s syndrome
     Dosage: 2 DF, BID; 2 TABLETS MORNING AND EVENING
     Route: 065
     Dates: start: 20230417, end: 20230417
  3. BETAMETHASONE DIPROPIONATE\BETAMETHASONE SODIUM PHOSPHATE [Suspect]
     Active Substance: BETAMETHASONE DIPROPIONATE\BETAMETHASONE SODIUM PHOSPHATE
     Indication: Sciatica
     Dosage: DOSE INCONNUE
     Route: 014
     Dates: start: 20230417, end: 20230417
  4. IOMERON [Suspect]
     Active Substance: IOMEPROL
     Indication: Sciatica
     Dosage: DOSE INCONNUE
     Route: 014
     Dates: start: 20230417, end: 20230417
  5. LANSOPRAZOLE [Suspect]
     Active Substance: LANSOPRAZOLE
     Indication: Product used for unknown indication
     Dosage: 1 DF, QD; IN THE EVENING
     Route: 065
  6. LIDOCAINE HYDROCHLORIDE [Suspect]
     Active Substance: DEXTROSE MONOHYDRATE\EPINEPHRINE\EPINEPHRINE BITARTRATE\LIDOCAINE\LIDOCAINE HYDROCHLORIDE\LIDOCAINE
     Indication: Sciatica
     Dosage: UNK
     Route: 065
     Dates: start: 20230417, end: 20230417
  7. MYCOPHENOLATE MOFETIL [Suspect]
     Active Substance: MYCOPHENOLATE MOFETIL
     Indication: Sjogren^s syndrome
     Dosage: 2 CP MATIN ET SOIR
     Route: 048
     Dates: start: 20230417, end: 20230417
  8. PREDNISONE [Suspect]
     Active Substance: PREDNISONE
     Indication: Product used for unknown indication
     Dosage: 12.5 MG/J PUIS DIMINUTION
     Route: 048
  9. XYLOCAINE [Suspect]
     Active Substance: LIDOCAINE HYDROCHLORIDE
     Indication: Sciatica
     Dosage: DOSE INCONNUE
     Route: 008
     Dates: start: 20230417, end: 20230417
  10. AMLODIPINE [Concomitant]
     Active Substance: AMLODIPINE BESYLATE
     Indication: Sciatica
     Dosage: 2 DF, QD; IN EVENING
     Route: 065
  11. BISOPROLOL [Concomitant]
     Active Substance: BISOPROLOL\BISOPROLOL FUMARATE
     Indication: Sciatica
     Dosage: 1 DF, QD; IN THE MORNING
     Route: 065
  12. BRICANYL [Concomitant]
     Active Substance: TERBUTALINE SULFATE
     Indication: Prophylaxis
     Dosage: 1-2 PUFFS, 3 TIMES A DAY
     Route: 065
  13. IRBESARTAN [Concomitant]
     Active Substance: IRBESARTAN
     Indication: Sciatica
     Dosage: 1 DF, QD; IN THE MORNING
     Route: 065
  14. ACETAMINOPHEN [Concomitant]
     Active Substance: ACETAMINOPHEN
     Indication: Pain
     Dosage: 1-2
     Route: 065
  15. LIDOCAINE [Concomitant]
     Active Substance: LIDOCAINE
     Indication: Sciatica
     Dosage: UNK, QD
     Route: 065
  16. ZOPICLONE [Concomitant]
     Active Substance: ZOPICLONE
     Indication: Insomnia
     Dosage: 1 DF, QD; 1 IN THE EVENING
     Route: 065
  17. CHOLECALCIFEROL [Concomitant]
     Active Substance: CHOLECALCIFEROL
     Indication: Product used for unknown indication
     Dosage: 50000 IU, QM; ONE AMPOULE PER MONTH
     Route: 065
  18. CHOLECALCIFEROL [Concomitant]
     Active Substance: CHOLECALCIFEROL
     Dosage: 50000 IU, QW; 1 AMPOULE PER WEEK FOR 6 WEEKS THEN ONE AMPOULE PER MONTH
     Route: 065

REACTIONS (2)
  - Meningitis bacterial [Recovered/Resolved]
  - Septic shock [Unknown]

NARRATIVE: CASE EVENT DATE: 20230501
